FAERS Safety Report 19672689 (Version 1)
Quarter: 2021Q3

REPORT INFORMATION
  Report Type: Report from Study
  Country: FR (occurrence: FR)
  Receive Date: 20210808
  Receipt Date: 20210808
  Transmission Date: 20211014
  Serious: Yes (Other)
  Sender: FDA-Public Use
  Company Number: FR-JNJFOC-20210813963

PATIENT

DRUGS (2)
  1. STELARA [Suspect]
     Active Substance: USTEKINUMAB
     Indication: COLITIS ULCERATIVE
     Route: 042
  2. STELARA [Suspect]
     Active Substance: USTEKINUMAB
     Dosage: EVERY 8?12 WEEKS
     Route: 058

REACTIONS (11)
  - Nasopharyngitis [Unknown]
  - Fatigue [Unknown]
  - Tooth abscess [Unknown]
  - Product use in unapproved indication [Unknown]
  - Adverse event [Unknown]
  - Rash [Unknown]
  - Arthralgia [Unknown]
  - Off label use [Unknown]
  - Drug ineffective [Unknown]
  - Clostridium difficile infection [Unknown]
  - Gastroenteritis [Unknown]
